FAERS Safety Report 23928643 (Version 1)
Quarter: 2024Q2

REPORT INFORMATION
  Report Type: Spontaneous
  Country: US (occurrence: US)
  Receive Date: 20240531
  Receipt Date: 20240531
  Transmission Date: 20240716
  Serious: No
  Sender: FDA-Public Use
  Company Number: US-RADIUS HEALTH INC.-2024US001338

PATIENT
  Sex: Male

DRUGS (1)
  1. TYMLOS [Suspect]
     Active Substance: ABALOPARATIDE
     Indication: Osteoporosis postmenopausal
     Dosage: 80 MICROGRAM, QD
     Route: 058
     Dates: start: 20240229, end: 20240301

REACTIONS (8)
  - Sleep disorder [Unknown]
  - Poor quality sleep [Unknown]
  - Muscle tightness [Recovered/Resolved]
  - Hypotension [Recovered/Resolved]
  - Muscle spasms [Recovering/Resolving]
  - Heart rate increased [Recovered/Resolved]
  - Back pain [Recovered/Resolved]
  - Dizziness [Recovered/Resolved]

NARRATIVE: CASE EVENT DATE: 20240101
